FAERS Safety Report 9334015 (Version 1)
Quarter: 2013Q2

REPORT INFORMATION
  Report Type: Spontaneous
  Country: US (occurrence: US)
  Receive Date: 20130606
  Receipt Date: 20130606
  Transmission Date: 20140414
  Serious: No
  Sender: FDA-Public Use
  Company Number: US-AMGEN-USASP2013012438

PATIENT
  Age: 85 Year
  Sex: Female

DRUGS (3)
  1. PROLIA [Suspect]
     Indication: OSTEOPOROSIS POSTMENOPAUSAL
  2. ATENOLOL [Concomitant]
  3. VERAPAMIL [Concomitant]

REACTIONS (3)
  - Sinusitis [Unknown]
  - Gingival abscess [Not Recovered/Not Resolved]
  - Device failure [Unknown]
